FAERS Safety Report 18846062 (Version 9)
Quarter: 2024Q4

REPORT INFORMATION
  Report Type: Spontaneous
  Country: US (occurrence: US)
  Receive Date: 20210204
  Receipt Date: 20241223
  Transmission Date: 20250114
  Serious: Yes (Hospitalization)
  Sender: PFIZER
  Company Number: US-PFIZER INC-2021099110

PATIENT
  Age: 80 Year
  Sex: Female

DRUGS (2)
  1. IBRANCE [Suspect]
     Active Substance: PALBOCICLIB
     Indication: Breast cancer female
     Dosage: 125 MG
  2. IBRANCE [Suspect]
     Active Substance: PALBOCICLIB
     Indication: Bone cancer
     Dosage: 100 MG, CYCLIC (TAKE 1 TABLET BY MOUTH EVERY DAY FOR 3 WEEKS ON, THEN 1 WEEK OFF)
     Route: 048

REACTIONS (8)
  - COVID-19 [Not Recovered/Not Resolved]
  - Off label use [Unknown]
  - Post-acute COVID-19 syndrome [Unknown]
  - Nasopharyngitis [Unknown]
  - Alopecia [Unknown]
  - Weight increased [Unknown]
  - Anaemia [Recovered/Resolved]
  - Pain in extremity [Unknown]
